FAERS Safety Report 14293456 (Version 8)
Quarter: 2020Q4

REPORT INFORMATION
  Report Type: Report from Study
  Country: JP (occurrence: JP)
  Receive Date: 20171215
  Receipt Date: 20201111
  Transmission Date: 20210113
  Serious: Yes (Other)
  Sender: FDA-Public Use
  Company Number: JP-INCYTE CORPORATION-2017IN010510

PATIENT

DRUGS (3)
  1. JAKAVI [Suspect]
     Active Substance: RUXOLITINIB
     Dosage: 10 MG, QD
     Route: 048
     Dates: start: 20190220
  2. JAKAVI [Suspect]
     Active Substance: RUXOLITINIB
     Indication: MYELOFIBROSIS
     Dosage: 15 MG, BID
     Route: 048
     Dates: start: 20170131, end: 20171212
  3. JAKAVI [Suspect]
     Active Substance: RUXOLITINIB
     Dosage: 20 MG, QD
     Route: 048
     Dates: start: 20171213, end: 20190219

REACTIONS (8)
  - Dizziness [Recovered/Resolved]
  - Ear haemorrhage [Recovered/Resolved]
  - Platelet count decreased [Recovering/Resolving]
  - Myelofibrosis [Not Recovered/Not Resolved]
  - White blood cell count increased [Unknown]
  - Retinal haemorrhage [Recovering/Resolving]
  - Retinal vein occlusion [Recovering/Resolving]
  - Tympanic membrane perforation [Unknown]

NARRATIVE: CASE EVENT DATE: 20170414
